FAERS Safety Report 6035350-9 (Version None)
Quarter: 2009Q1

REPORT INFORMATION
  Report Type: 
  Country: None (occurrence: None)
  Receive Date: 20090108
  Receipt Date: 20090108
  Transmission Date: 20090719
  Serious: Yes (Other)
  Sender: FDA-Public Use
  Company Number: None

PATIENT
  Age: 37 Year
  Sex: Female

DRUGS (16)
  1. DURAGESIC-100 [Suspect]
     Indication: PAIN
     Dosage: 100MCG -1 PATCH- Q72HRS TRANSDERMAL
     Route: 062
     Dates: start: 20081223, end: 20081230
  2. ZYRTEC [Concomitant]
  3. PHENERGAN HCL [Concomitant]
  4. ZOFRAN [Concomitant]
  5. DEPLIN [Concomitant]
  6. ADVAIR DISKUS 100/50 [Concomitant]
  7. CYMBALTA [Concomitant]
  8. MIRALAX [Concomitant]
  9. AMITIZA [Concomitant]
  10. REQUIP [Concomitant]
  11. PREDNSONE [Concomitant]
  12. DILTIAZEM [Concomitant]
  13. LORAZEPAM [Concomitant]
  14. JOLESSA [Concomitant]
  15. SYNTHROID [Concomitant]
  16. REPLIVA [Concomitant]

REACTIONS (9)
  - CHILLS [None]
  - DEVICE FAILURE [None]
  - DRUG WITHDRAWAL SYNDROME [None]
  - HYPERHIDROSIS [None]
  - NAUSEA [None]
  - PRODUCT QUALITY ISSUE [None]
  - PRURITUS [None]
  - RESTLESSNESS [None]
  - VOMITING [None]
